FAERS Safety Report 4895874-4 (Version None)
Quarter: 2006Q1

REPORT INFORMATION
  Report Type: 
  Country: None (occurrence: None)
  Receive Date: 20060125
  Receipt Date: 20031215
  Transmission Date: 20060701
  Serious: Yes (Hospitalization)
  Sender: FDA-Public Use
  Company Number: FR_031203302

PATIENT
  Age: 51 Year
  Sex: Male

DRUGS (7)
  1. VANCOMYCIN [Suspect]
     Indication: STAPHYLOCOCCAL INFECTION
     Dosage: 2.5 G/DAY
     Dates: start: 20031030, end: 20031107
  2. FUCIDINE CAP [Concomitant]
  3. CLARITIN [Concomitant]
  4. FENOFIBRATE [Concomitant]
  5. LOVENOX [Concomitant]
  6. OMEPRAZOLE [Concomitant]
  7. FERROUS SULFATE TAB [Concomitant]

REACTIONS (2)
  - PRURITUS [None]
  - RASH ERYTHEMATOUS [None]
